FAERS Safety Report 5693736-6 (Version None)
Quarter: 2008Q2

REPORT INFORMATION
  Report Type: 
  Country: None (occurrence: None)
  Receive Date: 20080403
  Receipt Date: 20080318
  Transmission Date: 20081010
  Serious: Yes (Hospitalization)
  Sender: FDA-Public Use
  Company Number: JP-ROCHE-548886

PATIENT
  Age: 34 Year
  Sex: Male

DRUGS (10)
  1. VALGANCICLOVIR HCL [Suspect]
     Indication: CYTOMEGALOVIRUS INFECTION
     Route: 048
     Dates: start: 20070710, end: 20070716
  2. VALGANCICLOVIR HCL [Suspect]
     Route: 048
     Dates: start: 20070717, end: 20070823
  3. CELLCEPT [Suspect]
     Indication: RENAL TRANSPLANT
     Route: 048
     Dates: start: 20061101
  4. DIAZEPAM [Suspect]
     Indication: INSOMNIA
     Route: 048
     Dates: start: 20061101
  5. TACROLIMUS HYDRATE [Suspect]
     Indication: RENAL TRANSPLANT
     Route: 048
     Dates: start: 20061101
  6. BIO-THREE [Suspect]
     Indication: RENAL TRANSPLANT
     Dosage: DOSE FORM - TABLET
     Route: 048
     Dates: start: 20061101
  7. PREDONINE [Suspect]
     Indication: RENAL TRANSPLANT
     Route: 048
     Dates: start: 20061101
  8. PARIET [Suspect]
     Indication: GASTRIC ULCER
     Route: 048
     Dates: start: 20061101
  9. BLOPRESS [Suspect]
     Indication: HYPERTENSION
     Route: 048
     Dates: start: 20061101
  10. MYSLEE [Suspect]
     Indication: INSOMNIA
     Route: 048
     Dates: start: 20061101

REACTIONS (1)
  - ACUTE PSYCHOSIS [None]
